FAERS Safety Report 6480653-7 (Version None)
Quarter: 2009Q4

REPORT INFORMATION
  Report Type: 
  Country: None (occurrence: None)
  Receive Date: 20091202
  Receipt Date: 20091117
  Transmission Date: 20100525
  Serious: Yes (Hospitalization, Other)
  Sender: FDA-Public Use
  Company Number: 000486

PATIENT
  Sex: Female

DRUGS (6)
  1. LACOSAMIDE [Suspect]
     Indication: EPILEPSY
     Dosage: 300 MG BID ORAL
     Route: 048
     Dates: start: 20030213
  2. KEPPRA [Concomitant]
  3. FOLIC ACID [Concomitant]
  4. CELEXA [Concomitant]
  5. TYLENOL (CAPLET) [Concomitant]
  6. ADVIL LIQUI-GELS [Concomitant]

REACTIONS (2)
  - NEPHROLITHIASIS [None]
  - URETERIC OBSTRUCTION [None]
